FAERS Safety Report 9777953 (Version 1)
Quarter: 2013Q4

REPORT INFORMATION
  Report Type: Spontaneous
  Country: MX (occurrence: MX)
  Receive Date: 20131223
  Receipt Date: 20131223
  Transmission Date: 20140711
  Serious: Yes (Hospitalization)
  Sender: FDA-Public Use
  Company Number: MX-AMGEN-MEXSP2013089363

PATIENT
  Age: 69 Year
  Sex: Male

DRUGS (10)
  1. NEUPOGEN [Suspect]
     Indication: COLONY STIMULATING FACTOR THERAPY
     Dosage: CYCLE 3:5 DOSES ADMINISTERED DAY 8-12 (300 UNIT NOT REPORTED)
     Route: 065
  2. NEUPOGEN [Suspect]
     Dosage: CYCKE 3:6 DOSES ADMINISTERED DAY 9-14
     Route: 065
  3. CYCLOPHOSPHAMIDE [Suspect]
     Indication: COLONY STIMULATING FACTOR THERAPY
     Dosage: 780 MG, Q3WK
     Route: 065
  4. CYCLOPHOSPHAMIDE [Suspect]
     Dosage: 750 MG, Q3WK
     Route: 065
  5. VINCRISTINE [Suspect]
     Indication: COLONY STIMULATING FACTOR THERAPY
     Dosage: 2 MG, Q3WK
     Route: 065
  6. VINCRISTINE [Suspect]
     Dosage: 2 MG, Q3WK
     Route: 065
  7. PREDNISONE [Suspect]
     Indication: COLONY STIMULATING FACTOR THERAPY
     Dosage: DAY 1-5 EVERY 3 WEEKS (100 MG)
     Route: 065
  8. PREDNISONE [Suspect]
     Dosage: DAY 1-5 EVERY 3 WEEKS (100 MG)
     Route: 065
  9. ETOPOSIDE [Concomitant]
     Dosage: UNK
  10. CYTARABINE [Concomitant]
     Dosage: UNK

REACTIONS (2)
  - Neutropenia [Unknown]
  - Febrile neutropenia [Unknown]
